FAERS Safety Report 23591173 (Version 2)
Quarter: 2024Q3

REPORT INFORMATION
  Report Type: Spontaneous
  Country: US (occurrence: US)
  Receive Date: 20240304
  Receipt Date: 20240807
  Transmission Date: 20241017
  Serious: No
  Sender: JOHNSON AND JOHNSON
  Company Number: US-JNJFOC-20240270994

PATIENT
  Sex: Male

DRUGS (7)
  1. RISPERDAL CONSTA [Suspect]
     Active Substance: RISPERIDONE
     Indication: Schizophrenia
     Dosage: 50 MG SHOT EACH MONTH OR BIWEEKLY INJECTION
     Route: 065
     Dates: start: 2008, end: 201709
  2. RISPERDAL CONSTA [Suspect]
     Active Substance: RISPERIDONE
  3. RISPERDAL CONSTA [Suspect]
     Active Substance: RISPERIDONE
  4. RISPERDAL CONSTA [Suspect]
     Active Substance: RISPERIDONE
  5. RISPERDAL M-TAB [Suspect]
     Active Substance: RISPERIDONE
     Indication: Schizophrenia
     Route: 048
     Dates: start: 2008
  6. RISPERDAL M-TAB [Suspect]
     Active Substance: RISPERIDONE
     Dosage: 2 TABLETS IN MORNING AND 2 AT NIGHT OF 5 MG
     Route: 048
     Dates: end: 201709
  7. HALOPERIDOL [Suspect]
     Active Substance: HALOPERIDOL
     Indication: Schizophrenia
     Route: 065

REACTIONS (12)
  - Psychotic disorder [Unknown]
  - Muscle spasms [Not Recovered/Not Resolved]
  - Muscle twitching [Unknown]
  - Muscle tightness [Unknown]
  - Parkinsonism [Unknown]
  - Product dose omission issue [Unknown]
  - Illness [Unknown]
  - Drug ineffective [Unknown]
  - Adverse event [Unknown]
  - Mental disorder [Unknown]
  - Social problem [Unknown]
  - Off label use [Unknown]
